FAERS Safety Report 5106226-6 (Version None)
Quarter: 2006Q3

REPORT INFORMATION
  Report Type: 
  Country: None (occurrence: None)
  Receive Date: 20060912
  Receipt Date: 20060905
  Transmission Date: 20061208
  Serious: Yes (Disabling, Other)
  Sender: FDA-Public Use
  Company Number: 2006106532

PATIENT
  Sex: Male

DRUGS (2)
  1. TAHOR (ATORVASTATIN) [Suspect]
     Indication: TYPE IIA HYPERLIPIDAEMIA
     Dosage: (20 MG)
     Dates: start: 20050101
  2. SERETIDE ^ALLEN + HANBURYS LTD^ (FLUTICASONE PROPIONATE SALMETEROL) [Concomitant]

REACTIONS (1)
  - TENDON RUPTURE [None]
